FAERS Safety Report 7054200-5 (Version None)
Quarter: 2010Q4

REPORT INFORMATION
  Report Type: 
  Country: None (occurrence: None)
  Receive Date: 20101020
  Receipt Date: 20081215
  Transmission Date: 20110411
  Serious: Yes (Hospitalization)
  Sender: FDA-Public Use
  Company Number: PHHY2008US37180

PATIENT
  Sex: Female

DRUGS (2)
  1. EXJADE [Suspect]
     Dosage: 1250 MG, QD
     Route: 048
     Dates: start: 20081112
  2. CHEMOTHERAPEUTICS NOS [Concomitant]

REACTIONS (2)
  - DYSPHAGIA [None]
  - PNEUMONIA [None]
